FAERS Safety Report 18540236 (Version 3)
Quarter: 2021Q1

REPORT INFORMATION
  Report Type: Report from Study
  Country: US (occurrence: US)
  Receive Date: 20201124
  Receipt Date: 20210112
  Transmission Date: 20210419
  Serious: No
  Sender: FDA-Public Use
  Company Number: NVSC2020US305212

PATIENT
  Sex: Male

DRUGS (3)
  1. COSENTYX [Suspect]
     Active Substance: SECUKINUMAB
     Indication: HYPERSENSITIVITY
  2. COSENTYX [Suspect]
     Active Substance: SECUKINUMAB
     Indication: DRUG INTOLERANCE
  3. COSENTYX [Suspect]
     Active Substance: SECUKINUMAB
     Indication: CONTRAINDICATED PRODUCT PRESCRIBED
     Dosage: 300 MG, QW
     Route: 058

REACTIONS (4)
  - Product use in unapproved indication [Unknown]
  - Drug intolerance [Unknown]
  - Hypersensitivity [Unknown]
  - Contraindicated product prescribed [Unknown]
